FAERS Safety Report 5834368-6 (Version None)
Quarter: 2008Q3

REPORT INFORMATION
  Report Type: 
  Country: None (occurrence: None)
  Receive Date: 20080805
  Receipt Date: 20080724
  Transmission Date: 20090109
  Serious: Yes (Hospitalization)
  Sender: FDA-Public Use
  Company Number: AT-SANOFI-SYNTHELABO-A01200805891

PATIENT
  Sex: Male

DRUGS (7)
  1. MIRTABENE [Concomitant]
     Dosage: 30 MG
  2. FUSIDIC ACID [Concomitant]
     Dosage: UNK
  3. ACETYLSALICYLIC ACID SRT [Concomitant]
     Dosage: 100 MG
  4. ESOMEPRAZOLE SODIUM [Concomitant]
     Dosage: 40 MG
  5. POTASSIUM CHLORIDE [Concomitant]
     Dosage: UNK
  6. FUROSEMIDE SODIUM [Concomitant]
     Dosage: 20 MG
  7. ELIGARD [Suspect]
     Indication: PROSTATE CANCER
     Dosage: 22.5 MG
     Route: 030
     Dates: start: 20060301, end: 20080301

REACTIONS (3)
  - LEUKOPENIA [None]
  - NORMOCHROMIC NORMOCYTIC ANAEMIA [None]
  - THROMBOCYTOPENIA [None]
